FAERS Safety Report 7781253-9 (Version None)
Quarter: 2011Q3

REPORT INFORMATION
  Report Type: 
  Country: None (occurrence: None)
  Receive Date: 20110927
  Receipt Date: 20110912
  Transmission Date: 20111222
  Serious: Yes (Life-Threatening, Hospitalization)
  Sender: FDA-Public Use
  Company Number: US-JUTA GMBH-2011-15320

PATIENT
  Age: 56 Year
  Sex: Female

DRUGS (2)
  1. POTASSIUM CHLORIDE EXTENDED-RELEASE (WATSON LABORATORIES) [Suspect]
     Indication: SUICIDE ATTEMPT
     Dosage: UNKNOWN AMOUNT OF 20 MEQ TABLETS
  2. LISINOPRIL [Suspect]
     Indication: SUICIDE ATTEMPT
     Dosage: UNK

REACTIONS (2)
  - INTENTIONAL OVERDOSE [None]
  - HYPERKALAEMIA [None]
